FAERS Safety Report 10216713 (Version 1)
Quarter: 2014Q2

REPORT INFORMATION
  Report Type: Report from Study
  Country: NL (occurrence: NL)
  Receive Date: 20140604
  Receipt Date: 20140604
  Transmission Date: 20141212
  Serious: Yes (Other)
  Sender: FDA-Public Use
  Company Number: NL-ACTELION-A-CH2014-99494

PATIENT
  Age: 17 Year
  Sex: Male
  Weight: 59.1 kg

DRUGS (1)
  1. ZAVESCA [Suspect]
     Indication: NIEMANN-PICK DISEASE
     Dosage: 200 MG, TID
     Route: 048
     Dates: start: 20110314

REACTIONS (1)
  - Convulsion [Unknown]
